FAERS Safety Report 13466594 (Version 1)
Quarter: 2017Q2

REPORT INFORMATION
  Report Type: Spontaneous
  Country: CN (occurrence: CN)
  Receive Date: 20170421
  Receipt Date: 20170421
  Transmission Date: 20170830
  Serious: Yes (Other)
  Sender: FDA-Public Use
  Company Number: CN-009507513-1704CHN007592

PATIENT
  Age: 34 Year
  Sex: Female

DRUGS (2)
  1. MARVELON [Suspect]
     Active Substance: DESOGESTREL\ETHINYL ESTRADIOL
     Dosage: UNK
     Route: 048
     Dates: end: 20170406
  2. MARVELON [Suspect]
     Active Substance: DESOGESTREL\ETHINYL ESTRADIOL
     Dosage: UNK
     Route: 048
     Dates: start: 20170416

REACTIONS (4)
  - Drug dose omission [Unknown]
  - Trachoma [Unknown]
  - Inappropriate schedule of drug administration [Unknown]
  - Adverse reaction [Recovering/Resolving]

NARRATIVE: CASE EVENT DATE: 20170415
